FAERS Safety Report 25436121 (Version 3)
Quarter: 2025Q3

REPORT INFORMATION
  Report Type: Spontaneous
  Country: US (occurrence: US)
  Receive Date: 20250614
  Receipt Date: 20250701
  Transmission Date: 20251021
  Serious: Yes (Hospitalization)
  Sender: MERCK SHARP & DOHME LLC
  Company Number: US-009507513-2291215

PATIENT
  Sex: Female
  Weight: 56.699 kg

DRUGS (21)
  1. WINREVAIR [Suspect]
     Active Substance: SOTATERCEPT-CSRK
     Indication: Product used for unknown indication
  2. WINREVAIR [Suspect]
     Active Substance: SOTATERCEPT-CSRK
  3. WINREVAIR [Suspect]
     Active Substance: SOTATERCEPT-CSRK
  4. WINREVAIR [Suspect]
     Active Substance: SOTATERCEPT-CSRK
  5. TYVASO [Suspect]
     Active Substance: TREPROSTINIL
     Indication: Pulmonary arterial hypertension
     Dosage: 90 UG, QID (15 BREATHS), CONCENTRATION: 0.6 MG/ML; FORM: INHALATION
     Route: 055
  6. TYVASO [Suspect]
     Active Substance: TREPROSTINIL
     Indication: Pulmonary arterial hypertension
     Route: 055
     Dates: start: 20110303
  7. SILDENAFIL [Concomitant]
     Active Substance: SILDENAFIL
  8. PLAQUENIL [Concomitant]
     Active Substance: HYDROXYCHLOROQUINE SULFATE
  9. PREDNISONE [Concomitant]
     Active Substance: PREDNISONE
  10. AZATHIOPRINE [Concomitant]
     Active Substance: AZATHIOPRINE
  11. MYCOPHENOLATE MOFETIL [Concomitant]
     Active Substance: MYCOPHENOLATE MOFETIL
  12. OPSUMIT [Concomitant]
     Active Substance: MACITENTAN
  13. GABAPENTIN [Concomitant]
     Active Substance: GABAPENTIN
  14. FLUTICASONE PROPIONATE [Concomitant]
     Active Substance: FLUTICASONE PROPIONATE
  15. ADVAIR HFA [Concomitant]
     Active Substance: FLUTICASONE PROPIONATE\SALMETEROL XINAFOATE
  16. DULOXETINE HYDROCHLORIDE [Concomitant]
     Active Substance: DULOXETINE HYDROCHLORIDE
  17. AZITHROMYCIN [Concomitant]
     Active Substance: AZITHROMYCIN
  18. FUROSEMIDE [Concomitant]
     Active Substance: FUROSEMIDE
  19. PRAVASTATIN SODIUM [Concomitant]
     Active Substance: PRAVASTATIN SODIUM
  20. LORATADINE [Concomitant]
     Active Substance: LORATADINE
  21. OXYGEN [Concomitant]
     Active Substance: OXYGEN

REACTIONS (3)
  - Pneumonia [Unknown]
  - Nausea [Unknown]
  - Asthenia [Unknown]
